FAERS Safety Report 5708668-4 (Version None)
Quarter: 2008Q2

REPORT INFORMATION
  Report Type: 
  Country: None (occurrence: None)
  Receive Date: 20080417
  Receipt Date: 20080404
  Transmission Date: 20081010
  Serious: Yes (Death, Other)
  Sender: FDA-Public Use
  Company Number: BE-AMGEN-US274016

PATIENT
  Age: 64 Year
  Sex: Female

DRUGS (2)
  1. ENBREL [Suspect]
     Indication: PSORIATIC ARTHROPATHY
     Route: 065
  2. DAFALGAN [Concomitant]
     Route: 048

REACTIONS (4)
  - DIARRHOEA [None]
  - INFLUENZA [None]
  - SUDDEN DEATH [None]
  - VOMITING [None]
